FAERS Safety Report 6764059-9 (Version None)
Quarter: 2010Q2

REPORT INFORMATION
  Report Type: 
  Country: None (occurrence: None)
  Receive Date: 20100610
  Receipt Date: 20100603
  Transmission Date: 20101027
  Serious: Yes (Hospitalization, Other)
  Sender: FDA-Public Use
  Company Number: US-JNJFOC-20100601874

PATIENT
  Sex: Male
  Weight: 168.29 kg

DRUGS (2)
  1. TOPAMAX [Suspect]
     Indication: WEIGHT LOSS DIET
     Route: 048
  2. LISINOPRIL [Concomitant]
     Route: 048

REACTIONS (6)
  - BLOOD TEST ABNORMAL [None]
  - ENDOCARDITIS [None]
  - RENAL FAILURE ACUTE [None]
  - SEPSIS [None]
  - STAPHYLOCOCCAL INFECTION [None]
  - WEIGHT DECREASED [None]
